FAERS Safety Report 9381409 (Version 3)
Quarter: 2013Q3

REPORT INFORMATION
  Report Type: Spontaneous
  Country: CH (occurrence: CH)
  Receive Date: 20130703
  Receipt Date: 20130903
  Transmission Date: 20140515
  Serious: Yes (Hospitalization, Other)
  Sender: FDA-Public Use
  Company Number: PHHY2013CH069403

PATIENT
  Sex: Female

DRUGS (3)
  1. GILENYA [Suspect]
     Indication: MULTIPLE SCLEROSIS
     Dosage: 0.5 MG, QD
     Route: 048
     Dates: start: 20120323, end: 20130628
  2. CRESTOR [Concomitant]
     Dosage: 5 MG, UNK
  3. EUTHYROX [Concomitant]
     Dosage: 50 UG, UNK

REACTIONS (15)
  - Epilepsy [Unknown]
  - Metastases to central nervous system [Unknown]
  - Expanded disability status scale score increased [Unknown]
  - Metastatic bronchial carcinoma [Unknown]
  - Atelectasis [Unknown]
  - Hypoventilation [Unknown]
  - Metastases to lung [Unknown]
  - Dyspnoea [Unknown]
  - Sensation of foreign body [Unknown]
  - Dysphagia [Unknown]
  - Cough [Unknown]
  - Metastases to bone [Unknown]
  - Neuroendocrine carcinoma [Unknown]
  - Neurone-specific enolase increased [Unknown]
  - Blood chromogranin A increased [Unknown]
